FAERS Safety Report 8252439-4 (Version None)
Quarter: 2012Q2

REPORT INFORMATION
  Report Type: 
  Country: None (occurrence: None)
  Receive Date: 20120402
  Receipt Date: 20110714
  Transmission Date: 20120825
  Serious: No
  Sender: FDA-Public Use
  Company Number: US-ABBOTT-11P-163-0839015-00

PATIENT
  Sex: Male
  Weight: 108.96 kg

DRUGS (3)
  1. ANDROGEL [Suspect]
     Dosage: 3 PUMPS 1X/DAY
     Dates: start: 20110101, end: 20110701
  2. ANDROGEL [Suspect]
     Indication: BLOOD TESTOSTERONE DECREASED
     Dosage: 3 PUMPS 1 A DAY
     Dates: start: 20100801, end: 20100901
  3. ANDROGEL [Suspect]
     Dosage: 2 PUMPS ONCE A DAY
     Dates: start: 20101101, end: 20110101

REACTIONS (3)
  - BLOOD TESTOSTERONE DECREASED [None]
  - CYST [None]
  - SCROTAL CYST [None]
